FAERS Safety Report 23924655 (Version 1)
Quarter: 2024Q2

REPORT INFORMATION
  Report Type: Spontaneous
  Country: HR (occurrence: HR)
  Receive Date: 20240531
  Receipt Date: 20240531
  Transmission Date: 20240716
  Serious: Yes (Other)
  Sender: FDA-Public Use
  Company Number: HR-GLAXOSMITHKLINE-HR2024EME067072

PATIENT

DRUGS (2)
  1. VENTOLIN [Suspect]
     Active Substance: ALBUTEROL SULFATE
     Indication: Cough
     Dosage: 100 UG, BID 100 MICROGRAMS/ 5MG/ML
     Route: 065
     Dates: start: 20240503, end: 20240503
  2. VENTOLIN [Suspect]
     Active Substance: ALBUTEROL SULFATE
     Indication: Bronchial obstruction

REACTIONS (4)
  - Cough [Recovering/Resolving]
  - Bronchospasm [Recovering/Resolving]
  - Wheezing [Recovering/Resolving]
  - Palpitations [Recovering/Resolving]

NARRATIVE: CASE EVENT DATE: 20240503
